FAERS Safety Report 9408672 (Version 1)
Quarter: 2013Q3

REPORT INFORMATION
  Report Type: Spontaneous
  Country: US (occurrence: None)
  Receive Date: 20130716
  Receipt Date: 20130716
  Transmission Date: 20140515
  Serious: Yes (Hospitalization)
  Sender: FDA-Public Use
  Company Number: 1715942

PATIENT
  Age: 65 Year
  Sex: Male
  Weight: 100.9 kg

DRUGS (2)
  1. LIDOCAINE HCL [Suspect]
     Indication: OSTEOARTHRITIS
     Dates: start: 20130416, end: 20130416
  2. KENALOG [Suspect]
     Indication: OSTEOARTHRITIS
     Route: 014
     Dates: start: 20130416, end: 20130416

REACTIONS (2)
  - Septic arthritis staphylococcal [None]
  - Suspected transmission of an infectious agent via product [None]
